FAERS Safety Report 10062807 (Version 2)
Quarter: 2014Q2

REPORT INFORMATION
  Report Type: Spontaneous
  Country: US (occurrence: US)
  Receive Date: 20140407
  Receipt Date: 20140605
  Transmission Date: 20141212
  Serious: No
  Sender: FDA-Public Use
  Company Number: US-PFIZER INC-2014095733

PATIENT
  Age: 52 Year
  Sex: Female

DRUGS (8)
  1. XELJANZ [Suspect]
     Indication: RHEUMATOID ARTHRITIS
     Dosage: 5 MG, 2X/DAY
     Route: 048
  2. CODEINE [Concomitant]
     Dosage: UNK
  3. VERAPAMIL [Concomitant]
     Dosage: UNK
  4. B-12 [Concomitant]
     Dosage: UNK
  5. LEVOTHYROXINE [Concomitant]
     Dosage: UNK
  6. CABERGOLINE [Concomitant]
     Dosage: UNK
  7. CALCIUM [Concomitant]
     Dosage: 500 MG, UNK
  8. VITAMIN D [Concomitant]
     Dosage: 1000 IU, UNK

REACTIONS (2)
  - Headache [Recovered/Resolved]
  - Urinary tract infection [Unknown]
